FAERS Safety Report 8031437-X (Version None)
Quarter: 2011Q4

REPORT INFORMATION
  Report Type: 
  Country: None (occurrence: None)
  Receive Date: 20111202
  Receipt Date: 20090904
  Transmission Date: 20120403
  Serious: Yes (Hospitalization, Disabling)
  Sender: FDA-Public Use
  Company Number: 2009-189973-NL

PATIENT
  Age: 33 Year
  Sex: Female
  Weight: 77.1 kg

DRUGS (5)
  1. NUVARING [Suspect]
     Indication: MENSTRUATION IRREGULAR
     Dosage: ; VAG
     Route: 067
     Dates: start: 20061006, end: 20070408
  2. ACETAMINOPHEN [Concomitant]
  3. DICYCLOMINE [Concomitant]
  4. LEXAPRO [Concomitant]
  5. IBUPROFEN (ADVIL) [Concomitant]

REACTIONS (9)
  - PLANTAR FASCIITIS [None]
  - WEIGHT INCREASED [None]
  - ADVERSE DRUG REACTION [None]
  - DEEP VEIN THROMBOSIS [None]
  - HEADACHE [None]
  - PULMONARY EMBOLISM [None]
  - FATIGUE [None]
  - DEPRESSION [None]
  - ANXIETY [None]
